FAERS Safety Report 8596116-9 (Version None)
Quarter: 2012Q3

REPORT INFORMATION
  Report Type: 
  Country: None (occurrence: None)
  Receive Date: 20120815
  Receipt Date: 20120806
  Transmission Date: 20120928
  Serious: Yes (Other)
  Sender: FDA-Public Use
  Company Number: US-CELGENEUS-163-21880-12040569

PATIENT
  Sex: Female
  Weight: 63.6 kg

DRUGS (3)
  1. REVLIMID [Suspect]
     Indication: MULTIPLE MYELOMA
     Dosage: 25 MILLIGRAM
     Route: 048
     Dates: start: 20120308
  2. POTASSIUM [Concomitant]
     Route: 065
  3. DEXAMETHASONE [Suspect]
     Dosage: 5.7143 MILLIGRAM
     Route: 048

REACTIONS (15)
  - MICTURITION URGENCY [None]
  - HYPERTENSION [None]
  - GASTROOESOPHAGEAL REFLUX DISEASE [None]
  - HEART RATE INCREASED [None]
  - PRURITUS [None]
  - MUSCLE SPASMS [None]
  - MIGRAINE WITH AURA [None]
  - DECREASED APPETITE [None]
  - DEHYDRATION [None]
  - VARICOSE VEIN [None]
  - DYSPHONIA [None]
  - FATIGUE [None]
  - NASAL CONGESTION [None]
  - DRY SKIN [None]
  - DRY MOUTH [None]
